FAERS Safety Report 20649292 (Version 1)
Quarter: 2022Q1

REPORT INFORMATION
  Report Type: Spontaneous
  Country: US (occurrence: US)
  Receive Date: 20220329
  Receipt Date: 20220329
  Transmission Date: 20220424
  Serious: No
  Sender: FDA-Public Use
  Company Number: US-PFIZER INC-2021666469

PATIENT

DRUGS (1)
  1. CHANTIX [Suspect]
     Active Substance: VARENICLINE TARTRATE
     Dosage: UNK (STARTED TAKING 1 PILL OVER A MONTH AGO)
     Dates: start: 202105

REACTIONS (1)
  - Stress [Unknown]

NARRATIVE: CASE EVENT DATE: 20210101
